FAERS Safety Report 12697557 (Version 1)
Quarter: 2016Q3

REPORT INFORMATION
  Report Type: Spontaneous
  Country: US (occurrence: US)
  Receive Date: 20160830
  Receipt Date: 20160830
  Transmission Date: 20161109
  Serious: No
  Sender: FDA-Public Use
  Company Number: US-BEH-2016073056

PATIENT
  Sex: Male
  Weight: 65.76 kg

DRUGS (13)
  1. PRIVIGEN [Suspect]
     Active Substance: HUMAN IMMUNOGLOBULIN G
     Indication: IMMUNODEFICIENCY COMMON VARIABLE
     Dosage: 25 G, QMT
     Route: 042
     Dates: start: 20160404
  2. ACETAMINOPHEN. [Concomitant]
     Active Substance: ACETAMINOPHEN
  3. EPIPEN [Concomitant]
     Active Substance: EPINEPHRINE
  4. CREATINE [Concomitant]
     Active Substance: CREATINE
  5. VITAMIN E                          /00110501/ [Concomitant]
     Active Substance: TOCOPHEROL
  6. MULTIVITAMIN                       /00097801/ [Concomitant]
     Active Substance: VITAMINS
  7. DIPHENHYDRAMINE. [Concomitant]
     Active Substance: DIPHENHYDRAMINE
  8. SODIUM CHLORIDE. [Concomitant]
     Active Substance: SODIUM CHLORIDE
  9. COENZYME Q10 [Concomitant]
     Active Substance: UBIDECARENONE
  10. FISH OIL [Concomitant]
     Active Substance: FISH OIL
  11. NIACIN. [Concomitant]
     Active Substance: NIACIN
  12. VITAMIN C [Concomitant]
     Active Substance: ASCORBIC ACID
  13. WHEY DRIED [Concomitant]

REACTIONS (1)
  - Hypertension [Unknown]
